FAERS Safety Report 6399084-3 (Version None)
Quarter: 2009Q4

REPORT INFORMATION
  Report Type: 
  Country: None (occurrence: None)
  Receive Date: 20091008
  Receipt Date: 20091001
  Transmission Date: 20100525
  Serious: Yes (Life-Threatening, Hospitalization)
  Sender: FDA-Public Use
  Company Number: 20097488

PATIENT
  Age: 40 Year
  Sex: Male

DRUGS (1)
  1. LIORESAL [Suspect]
     Indication: MUSCLE SPASTICITY
     Dosage: 100-250 MCG, DAILY, INTRATHECAL
     Route: 037

REACTIONS (3)
  - COGNITIVE DISORDER [None]
  - MEMORY IMPAIRMENT [None]
  - NEUROLEPTIC MALIGNANT SYNDROME [None]
